FAERS Safety Report 5295397-7 (Version None)
Quarter: 2007Q2

REPORT INFORMATION
  Report Type: 
  Country: None (occurrence: None)
  Receive Date: 20070406
  Receipt Date: 20070402
  Transmission Date: 20071010
  Serious: Yes (Hospitalization, Other)
  Sender: FDA-Public Use
  Company Number: 2007US000596

PATIENT
  Age: 78 Year
  Sex: Male

DRUGS (5)
  1. AMEVIVE [Suspect]
     Indication: PSORIASIS
     Dosage: 15 MG, INTRAMUSCULAR
     Route: 030
  2. CORTICOSTEROIDS [Concomitant]
  3. DERMATOLOGICAL PREPARATIONS [Concomitant]
  4. ACIPHEX [Concomitant]
  5. FLOMAX [Concomitant]

REACTIONS (3)
  - CD4 LYMPHOCYTES DECREASED [None]
  - DIVERTICULUM INTESTINAL HAEMORRHAGIC [None]
  - PANCYTOPENIA [None]
